FAERS Safety Report 9239860 (Version 1)
Quarter: 2013Q2

REPORT INFORMATION
  Report Type: Spontaneous
  Country: US (occurrence: US)
  Receive Date: 20130418
  Receipt Date: 20130418
  Transmission Date: 20140414
  Serious: No
  Sender: FDA-Public Use
  Company Number: US-009507513-1304USA007253

PATIENT
  Age: 40 Year
  Sex: Male

DRUGS (1)
  1. SAPHRIS [Suspect]
     Dosage: 5 MG, QPM
     Route: 060
     Dates: start: 20130408, end: 20130409

REACTIONS (3)
  - Fear of death [Recovered/Resolved]
  - Obsessive thoughts [Recovered/Resolved]
  - Inappropriate schedule of drug administration [Unknown]
